FAERS Safety Report 20475109 (Version 2)
Quarter: 2022Q1

REPORT INFORMATION
  Report Type: Spontaneous
  Country: US (occurrence: US)
  Receive Date: 20220215
  Receipt Date: 20220223
  Transmission Date: 20220423
  Serious: No
  Sender: FDA-Public Use
  Company Number: US-CELGENE-USA-20220203094

PATIENT
  Age: 70 Year
  Sex: Female

DRUGS (1)
  1. POMALYST [Suspect]
     Active Substance: POMALIDOMIDE
     Indication: Plasma cell myeloma
     Dosage: 4 MILLIGRAM
     Route: 048
     Dates: start: 202201, end: 202202

REACTIONS (9)
  - Laboratory test abnormal [Unknown]
  - Speech disorder [Unknown]
  - Chest discomfort [Unknown]
  - Fatigue [Unknown]
  - Dizziness [Unknown]
  - Peripheral swelling [Unknown]
  - Dyspnoea [Unknown]
  - Drug ineffective [Unknown]
  - Drug intolerance [Unknown]

NARRATIVE: CASE EVENT DATE: 20220130
